FAERS Safety Report 4457300-9 (Version None)
Quarter: 2004Q3

REPORT INFORMATION
  Report Type: 
  Country: None (occurrence: None)
  Receive Date: 20040922
  Receipt Date: 20040903
  Transmission Date: 20050211
  Serious: Yes (Hospitalization, Other)
  Sender: FDA-Public Use
  Company Number: USA040977452

PATIENT
  Sex: Female

DRUGS (2)
  1. STRATTERA [Suspect]
     Indication: ATTENTION DEFICIT/HYPERACTIVITY DISORDER
     Dosage: 80 MG/1 DAY
  2. PROPRANOLOL [Concomitant]

REACTIONS (5)
  - ANAPHYLACTIC SHOCK [None]
  - ERYTHEMA [None]
  - GENERALISED OEDEMA [None]
  - HYPERSENSITIVITY [None]
  - PALPITATIONS [None]
